FAERS Safety Report 11090444 (Version 1)
Quarter: 2015Q2

REPORT INFORMATION
  Report Type: Spontaneous
  Country: US (occurrence: None)
  Receive Date: 20150504
  Receipt Date: 20150504
  Transmission Date: 20150821
  Serious: Yes (Hospitalization)
  Sender: FDA-Public Use
  Company Number: None

PATIENT
  Age: 61 Year
  Sex: Female
  Weight: 84 kg

DRUGS (1)
  1. TAMOXIFEN [Suspect]
     Active Substance: TAMOXIFEN
     Dates: end: 20150430

REACTIONS (4)
  - Nausea [None]
  - Back pain [None]
  - Vomiting [None]
  - Abdominal pain lower [None]

NARRATIVE: CASE EVENT DATE: 20150427
